FAERS Safety Report 9467425 (Version 1)
Quarter: 2013Q3

REPORT INFORMATION
  Report Type: Spontaneous
  Country: US (occurrence: None)
  Receive Date: 20130819
  Receipt Date: 20130819
  Transmission Date: 20140515
  Serious: Yes (Other)
  Sender: FDA-Public Use
  Company Number: None

PATIENT
  Age: 52 Year
  Sex: Female
  Weight: 84.82 kg

DRUGS (2)
  1. MODAFINIL [Suspect]
     Indication: NARCOLEPSY
     Dosage: 200 MG  BID  ORAL?04/01/2013 - 08/23/2013
     Route: 048
     Dates: start: 20130401
  2. PLAVIX [Concomitant]

REACTIONS (2)
  - Narcolepsy [None]
  - Condition aggravated [None]
